FAERS Safety Report 10129931 (Version 1)
Quarter: 2014Q2

REPORT INFORMATION
  Report Type: Spontaneous
  Country: US (occurrence: US)
  Receive Date: 20140428
  Receipt Date: 20140428
  Transmission Date: 20141212
  Serious: No
  Sender: FDA-Public Use
  Company Number: US-BAYER-2014-061616

PATIENT
  Age: 55 Year
  Sex: Female
  Weight: 75 kg

DRUGS (3)
  1. ALEVE CAPLET [Suspect]
     Indication: TOOTHACHE
     Route: 048
  2. METOPROLOL [Concomitant]
     Dosage: UNK
  3. ANBESOL [BENZOCAINE] [Concomitant]
     Dosage: UNK

REACTIONS (1)
  - Extra dose administered [None]
